FAERS Safety Report 12098448 (Version 10)
Quarter: 2017Q4

REPORT INFORMATION
  Report Type: Spontaneous
  Country: CA (occurrence: CA)
  Receive Date: 20160222
  Receipt Date: 20171013
  Transmission Date: 20180320
  Serious: Yes (Other)
  Sender: FDA-Public Use
  Company Number: CA-ROCHE-1503365

PATIENT
  Age: 55 Year
  Sex: Female

DRUGS (8)
  1. XOLAIR [Suspect]
     Active Substance: OMALIZUMAB
     Route: 058
     Dates: start: 20170808
  2. PREDNISONE. [Suspect]
     Active Substance: PREDNISONE
     Indication: PHARYNGEAL OEDEMA
     Dosage: (FOR 3 DAYS)
     Route: 065
     Dates: start: 2014
  3. XOLAIR [Suspect]
     Active Substance: OMALIZUMAB
     Route: 058
     Dates: start: 20150130
  4. XOLAIR [Suspect]
     Active Substance: OMALIZUMAB
     Route: 058
     Dates: start: 201706
  5. XOLAIR [Suspect]
     Active Substance: OMALIZUMAB
     Indication: ASTHMA
     Route: 058
     Dates: start: 20130502
  6. XOLAIR [Suspect]
     Active Substance: OMALIZUMAB
     Route: 058
     Dates: start: 20141028
  7. SPIRIVA [Concomitant]
     Active Substance: TIOTROPIUM BROMIDE MONOHYDRATE
     Indication: PRODUCT USED FOR UNKNOWN INDICATION
     Route: 065
  8. PREDNISONE. [Suspect]
     Active Substance: PREDNISONE
     Indication: INFLUENZA
     Dosage: 5 MG,
     Route: 065
     Dates: start: 20141201

REACTIONS (36)
  - Throat tightness [Unknown]
  - Hypersensitivity [Unknown]
  - Pulmonary function test decreased [Unknown]
  - Crying [Unknown]
  - Throat tightness [Unknown]
  - Oedema peripheral [Unknown]
  - Hypoventilation [Unknown]
  - Respiratory rate increased [Unknown]
  - Logorrhoea [Unknown]
  - Dysphagia [Unknown]
  - Asthma [Unknown]
  - Influenza [Unknown]
  - Respiratory tract irritation [Unknown]
  - Substance-induced psychotic disorder [Unknown]
  - Dysphonia [Unknown]
  - Rhinorrhoea [Unknown]
  - Nasal discomfort [Unknown]
  - Malaise [Unknown]
  - Incorrect dose administered [Unknown]
  - Pulmonary function test abnormal [Unknown]
  - Arthritis [Unknown]
  - Abnormal behaviour [Unknown]
  - Agitation [Unknown]
  - Multiple allergies [Unknown]
  - Oxygen saturation decreased [Unknown]
  - Restlessness [Unknown]
  - Breath sounds abnormal [Unknown]
  - Feeling cold [Unknown]
  - Fatigue [Unknown]
  - Suicidal ideation [Unknown]
  - Joint swelling [Unknown]
  - Cough [Not Recovered/Not Resolved]
  - Dyspnoea [Unknown]
  - Pharyngeal oedema [Unknown]
  - Lacrimation increased [Unknown]
  - Chronic obstructive pulmonary disease [Unknown]

NARRATIVE: CASE EVENT DATE: 2014
